FAERS Safety Report 10963406 (Version 1)
Quarter: 2015Q1

REPORT INFORMATION
  Report Type: Spontaneous
  Country: US (occurrence: None)
  Receive Date: 20150326
  Receipt Date: 20150326
  Transmission Date: 20150721
  Serious: Yes (Death)
  Sender: FDA-Public Use
  Company Number: 2015EDG00013

PATIENT
  Age: 38 Year
  Sex: Female
  Weight: 99 kg

DRUGS (11)
  1. GABAPENTIN. [Concomitant]
     Active Substance: GABAPENTIN
  2. QUETIAPINE (QUETIAPINE) [Suspect]
     Active Substance: QUETIAPINE
  3. SAPHRIS [Suspect]
     Active Substance: ASENAPINE MALEATE
  4. CLONIDINE. [Concomitant]
     Active Substance: CLONIDINE
  5. PRAMIPEXOLE [Concomitant]
     Active Substance: PRAMIPEXOLE
  6. RISPERIDONE. [Concomitant]
     Active Substance: RISPERIDONE
  7. HYDROCODONE [Suspect]
     Active Substance: HYDROCODONE
  8. VODKA [Suspect]
     Active Substance: ALCOHOL
     Route: 048
  9. DULOXETINE [Concomitant]
     Active Substance: DULOXETINE
  10. ONDANSETRON [Concomitant]
     Active Substance: ONDANSETRON
  11. FLUOXETINE (FLUOXETINE) [Suspect]
     Active Substance: FLUOXETINE HYDROCHLORIDE

REACTIONS (3)
  - Accidental death [None]
  - Visceral congestion [None]
  - Toxicity to various agents [None]
